FAERS Safety Report 8534586-2 (Version None)
Quarter: 2012Q3

REPORT INFORMATION
  Report Type: 
  Country: None (occurrence: None)
  Receive Date: 20120724
  Receipt Date: 20120716
  Transmission Date: 20120928
  Serious: Yes (Other)
  Sender: FDA-Public Use
  Company Number: US-ROXANE LABORATORIES, INC.-2012-RO-01548RO

PATIENT
  Age: 86 Year
  Sex: Female

DRUGS (4)
  1. RISPERIDONE [Suspect]
  2. PRIMIDONE [Suspect]
  3. LITHIUM CARBONATE [Suspect]
  4. DONEPEZIL HCL [Suspect]

REACTIONS (3)
  - TOXICITY TO VARIOUS AGENTS [None]
  - DYSPHEMIA [None]
  - GRIP STRENGTH DECREASED [None]
